FAERS Safety Report 13724745 (Version 1)
Quarter: 2017Q3

REPORT INFORMATION
  Report Type: Report from Study
  Country: US (occurrence: US)
  Receive Date: 20170706
  Receipt Date: 20170706
  Transmission Date: 20171127
  Serious: Yes (Other)
  Sender: FDA-Public Use
  Company Number: US-BIOGEN-2017BI00424955

PATIENT
  Sex: Female
  Weight: 69.01 kg

DRUGS (1)
  1. TECFIDERA [Suspect]
     Active Substance: DIMETHYL FUMARATE
     Indication: MULTIPLE SCLEROSIS
     Dosage: MAINTENANCE DOSE
     Route: 048
     Dates: start: 20170422

REACTIONS (3)
  - Oropharyngeal candidiasis [Not Recovered/Not Resolved]
  - Oesophageal candidiasis [Not Recovered/Not Resolved]
  - Bacterial test positive [Not Recovered/Not Resolved]
